FAERS Safety Report 17648662 (Version 2)
Quarter: 2020Q2

REPORT INFORMATION
  Report Type: Report from Study
  Country: DE (occurrence: DE)
  Receive Date: 20200408
  Receipt Date: 20200414
  Transmission Date: 20200713
  Serious: Yes (Other)
  Sender: FDA-Public Use
  Company Number: DE-PURDUE-GBR-2020-0076103

PATIENT
  Age: 72 Year
  Weight: 76.2 kg

DRUGS (2)
  1. HYDROMORPHONE HYDROCHLORIDE. [Suspect]
     Active Substance: HYDROMORPHONE HYDROCHLORIDE
     Indication: PAIN
     Dosage: UNK
     Route: 065
  2. TRAMAL [Suspect]
     Active Substance: TRAMADOL
     Indication: PAIN
     Route: 065

REACTIONS (7)
  - Drug withdrawal syndrome [Unknown]
  - Hyperhidrosis [Unknown]
  - General physical health deterioration [Unknown]
  - Asthenia [Unknown]
  - Back pain [Unknown]
  - Pain [Unknown]
  - Dizziness [Unknown]
